FAERS Safety Report 9711474 (Version 2)
Quarter: 2014Q1

REPORT INFORMATION
  Report Type: Spontaneous
  Country: US (occurrence: US)
  Receive Date: 20131126
  Receipt Date: 20140210
  Transmission Date: 20141002
  Serious: No
  Sender: FDA-Public Use
  Company Number: US-B.I. PHARMACEUTICALS,INC./RIDGEFIELD-2013-BI-37589BP

PATIENT
  Age: 71 Year
  Sex: Male

DRUGS (2)
  1. COMBIVENT [Suspect]
     Indication: ASBESTOSIS
     Dosage: STRENGTH: 20 MCG / 100 MCG; DAILY DOSE: 80 MCG/ 400 MCG
     Route: 055
     Dates: start: 201308
  2. COMBIVENT [Suspect]
     Indication: ASTHMA
     Dosage: STRENGTH: 20 MCG / 100 MCG; DAILY DOSE: 80 MCG/ 400 MCG
     Route: 055
     Dates: start: 201310

REACTIONS (5)
  - Eye irritation [Not Recovered/Not Resolved]
  - Incorrect route of drug administration [Recovered/Resolved]
  - Overdose [Recovered/Resolved]
  - Off label use [Not Recovered/Not Resolved]
  - Off label use [Unknown]
